FAERS Safety Report 12845192 (Version 1)
Quarter: 2016Q4

REPORT INFORMATION
  Report Type: Spontaneous
  Country: US (occurrence: US)
  Receive Date: 20161013
  Receipt Date: 20161013
  Transmission Date: 20170207
  Serious: Yes (Death, Other)
  Sender: FDA-Public Use
  Company Number: US-PFIZER INC-2016477992

PATIENT
  Age: 93 Year
  Sex: Female
  Weight: 50 kg

DRUGS (7)
  1. XALATAN [Suspect]
     Active Substance: LATANOPROST
     Indication: GLAUCOMA
     Dosage: 1 DF, 1X/DAY; EYE DROP, ONCE A DAY IN BOTH EYES; THINKS IT MIGHT BE 0.05 OR 0.5ML
     Route: 047
  2. LEVOTHYROXINE. [Concomitant]
     Active Substance: LEVOTHYROXINE
     Indication: THYROID DISORDER
     Dosage: UNK UNK, 1X/DAY
  3. METOPROLOL. [Concomitant]
     Active Substance: METOPROLOL
     Indication: BLOOD PRESSURE MEASUREMENT
     Dosage: UNK UNK, 3X/DAY
  4. XALATAN [Suspect]
     Active Substance: LATANOPROST
     Indication: MACULAR DEGENERATION
  5. CADUET [Suspect]
     Active Substance: AMLODIPINE BESYLATE\ATORVASTATIN CALCIUM
     Indication: BLOOD PRESSURE MEASUREMENT
     Dosage: 1X/DAY
  6. CADUET [Suspect]
     Active Substance: AMLODIPINE BESYLATE\ATORVASTATIN CALCIUM
     Indication: BLOOD CHOLESTEROL
  7. LASIX [Concomitant]
     Active Substance: FUROSEMIDE
     Indication: RENAL FAILURE
     Dosage: 10 MG, 1X/DAY

REACTIONS (5)
  - Blood pressure abnormal [Fatal]
  - Cardiac failure [Fatal]
  - Cystitis [Fatal]
  - Lung disorder [Fatal]
  - Renal failure [Fatal]
